FAERS Safety Report 5445488-2 (Version None)
Quarter: 2007Q3

REPORT INFORMATION
  Report Type: 
  Country: None (occurrence: None)
  Receive Date: 20070906
  Receipt Date: 20070903
  Transmission Date: 20080115
  Serious: Yes (Hospitalization)
  Sender: FDA-Public Use
  Company Number: GB-BOEHRINGER INGELHEIM PHARMACEUTICALS, INC.-2007-UK-01425UK

PATIENT
  Sex: Female

DRUGS (3)
  1. VIRAMUNE [Suspect]
     Indication: ACUTE HIV INFECTION
  2. KIVEXA [Suspect]
     Indication: ACUTE HIV INFECTION
  3. TRIZIVIR [Concomitant]
     Indication: HIV INFECTION

REACTIONS (1)
  - GUILLAIN-BARRE SYNDROME [None]
